FAERS Safety Report 6332570-0 (Version None)
Quarter: 2009Q3

REPORT INFORMATION
  Report Type: 
  Country: None (occurrence: None)
  Receive Date: 20090828
  Receipt Date: 20090821
  Transmission Date: 20100115
  Serious: No
  Sender: FDA-Public Use
  Company Number: JP-BAYER-200912737BYL

PATIENT
  Age: 60 Year
  Sex: Male
  Weight: 100 kg

DRUGS (8)
  1. NEXAVAR [Suspect]
     Indication: RENAL CELL CARCINOMA STAGE IV
     Dosage: UNIT DOSE: 200 MG
     Route: 048
     Dates: start: 20090121, end: 20090204
  2. NEXAVAR [Suspect]
     Dosage: UNIT DOSE: 200 MG
     Route: 048
     Dates: start: 20090205, end: 20090218
  3. NEXAVAR [Suspect]
     Dosage: UNIT DOSE: 200 MG
     Route: 048
     Dates: start: 20090220
  4. OLMETEC [Concomitant]
     Route: 048
     Dates: start: 20090120
  5. ZYLORIC [Concomitant]
     Route: 048
     Dates: start: 20090121
  6. PANALDINE [Concomitant]
     Route: 048
     Dates: start: 20090121
  7. ADALAT CC [Concomitant]
     Dosage: UNIT DOSE: 20 MG
     Route: 048
     Dates: start: 20090121
  8. ASPIRIN [Concomitant]
     Dosage: UNIT DOSE: 100 MG
     Route: 048
     Dates: start: 20090121

REACTIONS (14)
  - ARTHRALGIA [None]
  - BLOOD PHOSPHORUS DECREASED [None]
  - CYSTITIS [None]
  - DECREASED APPETITE [None]
  - DIABETES MELLITUS [None]
  - DIZZINESS [None]
  - GLUCOSE URINE PRESENT [None]
  - HYPERLIPIDAEMIA [None]
  - HYPERTENSION [None]
  - NAUSEA [None]
  - PALMAR-PLANTAR ERYTHRODYSAESTHESIA SYNDROME [None]
  - PROTEIN URINE PRESENT [None]
  - PRURITUS GENITAL [None]
  - RASH [None]
